FAERS Safety Report 13527033 (Version 1)
Quarter: 2017Q2

REPORT INFORMATION
  Report Type: Spontaneous
  Country: US (occurrence: US)
  Receive Date: 20170509
  Receipt Date: 20170509
  Transmission Date: 20170830
  Serious: No
  Sender: FDA-Public Use
  Company Number: None

PATIENT
  Age: 71 Year
  Sex: Female
  Weight: 87.75 kg

DRUGS (10)
  1. LUTEIN [Concomitant]
     Active Substance: LUTEIN
  2. CENTRUM SILVER [Concomitant]
     Active Substance: MINERALS\VITAMINS
  3. METOPROLOL. [Concomitant]
     Active Substance: METOPROLOL
  4. MAGNESIUM [Concomitant]
     Active Substance: MAGNESIUM
  5. FLONASE [Suspect]
     Active Substance: FLUTICASONE PROPIONATE
     Indication: NASAL CONGESTION
     Dosage: ?          QUANTITY:1 SPRAY(S);?
     Route: 055
  6. OMEPRAZOLE. [Concomitant]
     Active Substance: OMEPRAZOLE
  7. EYE HEALTH SUPPLEMENT [Concomitant]
  8. CALCIUM [Concomitant]
     Active Substance: CALCIUM
  9. FLONASE [Suspect]
     Active Substance: FLUTICASONE PROPIONATE
     Indication: HYPERSENSITIVITY
     Dosage: ?          QUANTITY:1 SPRAY(S);?
     Route: 055
  10. ACYCLOVIR. [Concomitant]
     Active Substance: ACYCLOVIR

REACTIONS (2)
  - Ageusia [None]
  - Anosmia [None]

NARRATIVE: CASE EVENT DATE: 20160420
